FAERS Safety Report 4901795-0 (Version None)
Quarter: 2006Q1

REPORT INFORMATION
  Report Type: 
  Country: None (occurrence: None)
  Receive Date: 20060201
  Receipt Date: 20060201
  Transmission Date: 20060701
  Serious: Yes (Hospitalization)
  Sender: FDA-Public Use
  Company Number: None

PATIENT
  Age: 85 Year
  Sex: Male
  Weight: 62.1428 kg

DRUGS (11)
  1. TRIMETHOPRIM + SULFAMETHOXAZOLE [Suspect]
     Indication: STAPHYLOCOCCAL INFECTION
     Dosage: ONE TABLET PO DAILY
     Route: 048
  2. DIGOXIN [Concomitant]
  3. TRIAMCINOLONE [Concomitant]
  4. OMEPRAZOLE [Concomitant]
  5. HYDROMORPHONE/ACETAMINOPHEN [Concomitant]
  6. FLUNISOLIDE [Concomitant]
  7. COLACE [Concomitant]
  8. FCSO4 [Concomitant]
  9. WARFARIN SODIUM [Concomitant]
  10. LASIX [Concomitant]
  11. HEPARIN [Concomitant]

REACTIONS (3)
  - HYPONATRAEMIA [None]
  - REFUSAL OF TREATMENT BY PATIENT [None]
  - RENAL IMPAIRMENT [None]
